FAERS Safety Report 6617397-4 (Version None)
Quarter: 2010Q1

REPORT INFORMATION
  Report Type: 
  Country: None (occurrence: None)
  Receive Date: 20100307
  Receipt Date: 20100226
  Transmission Date: 20100710
  Serious: Yes (Other)
  Sender: FDA-Public Use
  Company Number: JP-BAYER-200913178BYL

PATIENT
  Age: 59 Year
  Sex: Male
  Weight: 61 kg

DRUGS (5)
  1. NEXAVAR [Suspect]
     Indication: RENAL CELL CARCINOMA
     Dosage: TOTAL DAILY DOSE: 800 MG  UNIT DOSE: 200 MG
     Route: 048
     Dates: start: 20090409
  2. MERCAZOLE [Concomitant]
     Route: 048
  3. FERROMIA [Concomitant]
     Route: 048
  4. ALDACTONE [Concomitant]
     Route: 048
  5. LASIX [Concomitant]
     Route: 048

REACTIONS (2)
  - DIARRHOEA [None]
  - SUPRAVENTRICULAR TACHYCARDIA [None]
